FAERS Safety Report 14929871 (Version 4)
Quarter: 2019Q1

REPORT INFORMATION
  Report Type: Spontaneous
  Country: US (occurrence: US)
  Receive Date: 20180523
  Receipt Date: 20190313
  Transmission Date: 20190417
  Serious: Yes (Disabling, Other)
  Sender: FDA-Public Use
  Company Number: US-ASTRAZENECA-2018SE63820

PATIENT
  Age: 24044 Day
  Sex: Female
  Weight: 72.6 kg

DRUGS (58)
  1. PREMARIN [Concomitant]
     Active Substance: ESTROGENS, CONJUGATED
     Route: 065
     Dates: start: 20040123
  2. VIOXX [Concomitant]
     Active Substance: ROFECOXIB
     Route: 065
     Dates: start: 20040123
  3. MICARDIS [Concomitant]
     Active Substance: TELMISARTAN
     Route: 065
     Dates: start: 20040223
  4. HYOSCYAMINE SULFATE. [Concomitant]
     Active Substance: HYOSCYAMINE SULFATE
     Indication: ABDOMINAL DISCOMFORT
     Route: 048
  5. AMLODIPINE [Concomitant]
     Active Substance: AMLODIPINE BESYLATE
     Indication: BLOOD PRESSURE MEASUREMENT
     Route: 065
     Dates: start: 2012
  6. ROZEREM [Concomitant]
     Active Substance: RAMELTEON
     Indication: SLEEP DISORDER
     Route: 065
     Dates: start: 2013
  7. FAMOTIDINE. [Concomitant]
     Active Substance: FAMOTIDINE
     Route: 065
     Dates: start: 1996, end: 2010
  8. LAC-HYDRIN [Concomitant]
     Active Substance: AMMONIUM LACTATE
     Route: 065
     Dates: start: 20040227
  9. AMBIEN [Concomitant]
     Active Substance: ZOLPIDEM TARTRATE
     Route: 065
     Dates: start: 20040915
  10. LISINOPRIL. [Concomitant]
     Active Substance: LISINOPRIL
     Dosage: 1 TAB PO DAILY
     Route: 048
  11. NEXIUM [Suspect]
     Active Substance: ESOMEPRAZOLE MAGNESIUM
     Indication: GASTROOESOPHAGEAL REFLUX DISEASE
     Route: 048
     Dates: start: 2004, end: 2007
  12. ASPIRIN. [Concomitant]
     Active Substance: ASPIRIN
     Indication: BLOOD PRESSURE MEASUREMENT
     Route: 065
     Dates: start: 1993
  13. MAGNESIUM OXIDE. [Concomitant]
     Active Substance: MAGNESIUM OXIDE
     Indication: BLOOD MAGNESIUM
     Route: 065
     Dates: start: 2014
  14. VITAMIN B12 [Concomitant]
     Active Substance: CYANOCOBALAMIN
     Indication: ASTHENIA
     Route: 065
     Dates: start: 2016
  15. METHOCARBAMOL. [Concomitant]
     Active Substance: METHOCARBAMOL
     Route: 065
     Dates: start: 20040223
  16. BEXTRA [Concomitant]
     Active Substance: VALDECOXIB
     Route: 065
     Dates: start: 20041001
  17. AMOXICILLIN. [Concomitant]
     Active Substance: AMOXICILLIN
     Route: 065
     Dates: start: 20041208
  18. ORATUSS LIQUID [Concomitant]
     Route: 065
     Dates: start: 20041208
  19. SKELAXIN [Concomitant]
     Active Substance: METAXALONE
     Route: 065
     Dates: start: 20060609
  20. LIPITOR [Concomitant]
     Active Substance: ATORVASTATIN CALCIUM
     Dosage: 1 TAB PO BEDTIME
     Route: 048
  21. TERBINAFINE HYDROCHLORIDE. [Concomitant]
     Active Substance: TERBINAFINE HYDROCHLORIDE
     Dosage: 1 TAB PO DAILY
     Route: 048
  22. NEXIUM [Suspect]
     Active Substance: ESOMEPRAZOLE MAGNESIUM
     Indication: GASTROOESOPHAGEAL REFLUX DISEASE
     Dosage: 40 MG
     Route: 048
     Dates: start: 20040123
  23. FENOFIBRATE. [Concomitant]
     Active Substance: FENOFIBRATE
     Indication: HYPERLIPIDAEMIA
     Route: 065
     Dates: start: 2015
  24. TYLEOL EXTRA STRENGTH [Concomitant]
     Indication: ARTHRITIS
     Route: 065
     Dates: start: 2014
  25. GLUCOPHAGE XR [Concomitant]
     Active Substance: METFORMIN HYDROCHLORIDE
     Route: 065
     Dates: start: 20040129
  26. ZOLOFT [Concomitant]
     Active Substance: SERTRALINE HYDROCHLORIDE
     Route: 065
     Dates: start: 20040202
  27. MELOXICAM. [Concomitant]
     Active Substance: MELOXICAM
     Route: 065
     Dates: start: 20060921
  28. NEXIUM [Suspect]
     Active Substance: ESOMEPRAZOLE MAGNESIUM
     Indication: GASTROOESOPHAGEAL REFLUX DISEASE
     Dosage: 40 MG
     Route: 048
     Dates: start: 2001
  29. METFORMIN [Concomitant]
     Active Substance: METFORMIN HYDROCHLORIDE
     Indication: TYPE 2 DIABETES MELLITUS
     Route: 065
     Dates: start: 2013
  30. MULTIVITAMIN [Concomitant]
     Active Substance: VITAMINS
     Indication: ASTHENIA
     Route: 065
     Dates: start: 1998
  31. FOLIC ACID. [Concomitant]
     Active Substance: FOLIC ACID
     Indication: BLOOD IRON
     Route: 065
     Dates: start: 2014
  32. ALLEGRA [Concomitant]
     Active Substance: FEXOFENADINE HYDROCHLORIDE
     Route: 065
     Dates: start: 20040123
  33. LIQUIBID-D [Concomitant]
     Route: 065
     Dates: start: 20041208
  34. MOBIC [Concomitant]
     Active Substance: MELOXICAM
     Route: 065
     Dates: start: 20050701
  35. PROMETHAZINE HYDROCHLORIDE. [Concomitant]
     Active Substance: PROMETHAZINE HYDROCHLORIDE
     Indication: NAUSEA
     Dosage: 1 TAB PO Q6H PRN
     Route: 048
  36. NEXIUM [Suspect]
     Active Substance: ESOMEPRAZOLE MAGNESIUM
     Indication: GASTROOESOPHAGEAL REFLUX DISEASE
     Route: 048
     Dates: start: 1991, end: 2014
  37. SINGULAIR [Concomitant]
     Active Substance: MONTELUKAST SODIUM
     Indication: CHRONIC OBSTRUCTIVE PULMONARY DISEASE
     Route: 065
     Dates: start: 2012
  38. TYLEOL EXTRA STRENGTH [Concomitant]
     Indication: HEADACHE
     Route: 065
     Dates: start: 2014
  39. BENADRYL [Concomitant]
     Active Substance: DIPHENHYDRAMINE HYDROCHLORIDE
     Indication: PRURITUS
     Route: 065
     Dates: start: 2014
  40. NASACORT [Concomitant]
     Active Substance: TRIAMCINOLONE ACETONIDE
     Route: 045
     Dates: start: 20040623
  41. VITAMIN D3 [Concomitant]
     Active Substance: CHOLECALCIFEROL
     Dosage: 1 TAB PO DAILY
     Route: 048
  42. DIPHENHYDRAMINE HYDROCHLORIDE. [Concomitant]
     Active Substance: DIPHENHYDRAMINE HYDROCHLORIDE
     Route: 048
  43. CETIRIZINE [Concomitant]
     Active Substance: CETIRIZINE HYDROCHLORIDE
     Indication: SINUSITIS
     Route: 065
     Dates: start: 2013
  44. FERROUS SULFATE. [Concomitant]
     Active Substance: FERROUS SULFATE
     Indication: ANAEMIA
     Route: 065
     Dates: start: 2013
  45. CETIRIZINE [Concomitant]
     Active Substance: CETIRIZINE HYDROCHLORIDE
     Route: 048
  46. ALBUTEROL SULFATE. [Concomitant]
     Active Substance: ALBUTEROL SULFATE
     Dosage: 1 TAB PO DAILY
     Route: 048
  47. OXYCODONE HCL/ACETAMINOPHEN [Concomitant]
     Dosage: 1 TAB PO Q6H PRN
     Route: 048
  48. GAVISCON [Concomitant]
     Active Substance: ALUMINUM HYDROXIDE\MAGNESIUM CARBONATE
     Dosage: EVERY 12 HOURS
     Route: 065
     Dates: start: 1998, end: 2010
  49. LOTREL [Concomitant]
     Active Substance: AMLODIPINE BESYLATE\BENAZEPRIL HYDROCHLORIDE
     Route: 065
     Dates: start: 20040129
  50. SYNTHROID [Concomitant]
     Active Substance: LEVOTHYROXINE SODIUM
     Route: 065
     Dates: start: 20040129
  51. ELIDEL [Concomitant]
     Active Substance: PIMECROLIMUS
     Route: 065
     Dates: start: 20040908
  52. HYDROCHLOROTHIAZIDE. [Concomitant]
     Active Substance: HYDROCHLOROTHIAZIDE
     Dosage: 1 TAB PO DAILY
     Route: 048
  53. PREVACID [Suspect]
     Active Substance: LANSOPRAZOLE
     Indication: GASTROOESOPHAGEAL REFLUX DISEASE
     Route: 065
     Dates: start: 2004
  54. PROTONIX [Suspect]
     Active Substance: PANTOPRAZOLE SODIUM
     Indication: GASTROOESOPHAGEAL REFLUX DISEASE
     Route: 065
     Dates: start: 2011
  55. SERTRALINE [Concomitant]
     Active Substance: SERTRALINE HYDROCHLORIDE
     Indication: ANXIETY
     Route: 065
     Dates: start: 2012
  56. LOPERAMIDE [Concomitant]
     Active Substance: LOPERAMIDE
     Indication: DIARRHOEA
     Route: 065
     Dates: start: 2017
  57. BIOTIN [Concomitant]
     Active Substance: BIOTIN
     Indication: SKIN DISORDER
     Route: 065
     Dates: start: 2017
  58. ZANTAC [Concomitant]
     Active Substance: RANITIDINE HYDROCHLORIDE
     Route: 065
     Dates: start: 2008, end: 2012

REACTIONS (4)
  - Chronic kidney disease [Not Recovered/Not Resolved]
  - Nephrogenic anaemia [Unknown]
  - Acute kidney injury [Unknown]
  - Renal failure [Unknown]

NARRATIVE: CASE EVENT DATE: 20140218
